FAERS Safety Report 5399008-1 (Version None)
Quarter: 2007Q3

REPORT INFORMATION
  Report Type: 
  Country: None (occurrence: None)
  Receive Date: 20070727
  Receipt Date: 20070723
  Transmission Date: 20080115
  Serious: Yes (Other)
  Sender: FDA-Public Use
  Company Number: SE-BRISTOL-MYERS SQUIBB COMPANY-13856349

PATIENT
  Age: 46 Year
  Sex: Male

DRUGS (3)
  1. SOTALOL HYDROCHLORIDE [Suspect]
  2. WARFARIN SODIUM [Suspect]
  3. ATORVASTATIN CALCIUM [Suspect]

REACTIONS (3)
  - AMYOTROPHIC LATERAL SCLEROSIS [None]
  - THROMBOSIS [None]
  - WALKING AID USER [None]
